FAERS Safety Report 9788669 (Version 2)
Quarter: 2014Q1

REPORT INFORMATION
  Report Type: Spontaneous
  Country: US (occurrence: US)
  Receive Date: 20131230
  Receipt Date: 20140121
  Transmission Date: 20141002
  Serious: Yes (Other)
  Sender: FDA-Public Use
  Company Number: US-JNJFOC-20131214678

PATIENT
  Sex: Male

DRUGS (1)
  1. TRAMADOL [Suspect]
     Indication: PAIN
     Route: 048

REACTIONS (1)
  - Circulatory collapse [Unknown]
